FAERS Safety Report 8502250-1 (Version None)
Quarter: 2012Q3

REPORT INFORMATION
  Report Type: 
  Country: None (occurrence: None)
  Receive Date: 20120711
  Receipt Date: 20120706
  Transmission Date: 20120928
  Serious: Yes (Hospitalization)
  Sender: FDA-Public Use
  Company Number: ES-AMGEN-ESPCT2012036056

PATIENT
  Age: 61 Year
  Sex: Female

DRUGS (7)
  1. PANITUMUMAB [Suspect]
     Indication: ANAL CANCER
     Dosage: 6 MG/KG, Q2WK
     Route: 042
     Dates: start: 20120430
  2. FLUOROURACIL [Concomitant]
     Dosage: 1000 MG/M2, Q2WK
     Route: 042
     Dates: start: 20120430
  3. ENALAPRIL MALEATE [Concomitant]
     Dosage: 20 MG, QD
     Route: 048
  4. MITOMYCIN [Concomitant]
     Dosage: 10 MG/M2, Q2WK
     Route: 042
     Dates: start: 20120430
  5. GLICLAZIDE [Concomitant]
     Dosage: 30 MG, QD
     Route: 048
  6. SIMVASTATIN [Concomitant]
     Dosage: 20 MG, QD
     Route: 048
  7. BISOPROLOL FUMARATE [Concomitant]
     Dosage: 10 MG, QD
     Route: 048

REACTIONS (1)
  - FEBRILE NEUTROPENIA [None]
